FAERS Safety Report 5683866-7 (Version None)
Quarter: 2008Q1

REPORT INFORMATION
  Report Type: 
  Country: None (occurrence: None)
  Receive Date: 20080326
  Receipt Date: 20080312
  Transmission Date: 20080703
  Serious: Yes (Hospitalization)
  Sender: FDA-Public Use
  Company Number: 02100-JPN-07-0649

PATIENT
  Age: 57 Year
  Sex: Female

DRUGS (52)
  1. PLETAL [Suspect]
     Indication: CEREBROVASCULAR ACCIDENT
     Dosage: 100 MG, BID ORAL; 100 MG, BID; ORAL; 100 MG, BID; ORAL
     Route: 048
     Dates: start: 20070912, end: 20080111
  2. PLETAL [Suspect]
     Indication: CEREBROVASCULAR ACCIDENT
     Dosage: 100 MG, BID ORAL; 100 MG, BID; ORAL; 100 MG, BID; ORAL
     Route: 048
     Dates: start: 20080115, end: 20080217
  3. PLETAL [Suspect]
     Indication: CEREBROVASCULAR ACCIDENT
     Dosage: 100 MG, BID ORAL; 100 MG, BID; ORAL; 100 MG, BID; ORAL
     Route: 048
     Dates: start: 20080221
  4. PLAVIX [Suspect]
     Indication: CEREBROVASCULAR ACCIDENT
     Dosage: 75 MG, QD ORAL; 75 MG, QD, ORAL;
     Route: 048
     Dates: start: 20070912, end: 20080111
  5. PLAVIX [Suspect]
     Indication: CEREBROVASCULAR ACCIDENT
     Dosage: 75 MG, QD ORAL; 75 MG, QD, ORAL;
     Route: 048
     Dates: start: 20080115, end: 20080217
  6. METFORMIN HCL [Concomitant]
  7. GLIMEPIRIDE [Concomitant]
  8. ATORVASTATIN CALCIUM (ATORVASTATIN CALCIUM) TABLET [Concomitant]
  9. CITALOPRAM (CITALOPRAM) [Concomitant]
  10. RAUBASINE-ALMITRINE BISMESILATE (RAUBASINE-ALMITRINE BISMESILATE) [Concomitant]
  11. LACTOBACILLUS ACIDOPHILLUS (LACTOBACILLUS ACIDOPHILLUS) [Concomitant]
  12. ASPIRIN [Concomitant]
  13. TELMISARTAN-HYDROCHLOROTHIAZIDE (TELMISARTAN-HYDROCHLOROTHIAZIDE) [Concomitant]
  14. CLOPIDOGREL (CLOPIDOGREL) TABLET [Concomitant]
  15. BISACODYL (BISACODYL) [Concomitant]
  16. TAMSULOSIN HYDROCHLORIDE (TAMSULOSIN HYDROCHLORIDE) [Concomitant]
  17. METHYLPREDNISOLONE ACEPONATE (METHYLPREDNISOLONE ACEPONATE) [Concomitant]
  18. METFORMIN HCL [Concomitant]
  19. TRAMADOL HCL [Concomitant]
  20. PAN-B-COMP (MADE BY DAI-HAN) (PAN-B-COMP (MADE BY DAI-HAN)) [Concomitant]
  21. MAGNESIUM OXIDE (MAGNESIUM OXIDE) [Concomitant]
  22. ALAXYL GRANULE (MADE BY BUKWANG) (ALAXYL GRANULE (MADE BY BUKWANG)) [Concomitant]
  23. ESCITALOPRAM OXALATE (ESCITALOPRAM OXALATE) [Concomitant]
  24. DEXTROSE/SODIUM CHLORIDE (DEXTROSE/SODIUM CHLORIDE) [Concomitant]
  25. SODIUM CHLORIDE 0.9% [Concomitant]
  26. POTASSIUM CHLORIDE [Concomitant]
  27. METOCLOPRAMIDE HYDROCHLORIDE [Concomitant]
  28. GLUCOSE 10% (GLUCOSE) [Concomitant]
  29. HUMAN REGULAR INSULIN (HUMAN REGULAR INSULIN) [Concomitant]
  30. ALMAGATE (ALMAGATE) [Concomitant]
  31. AMINO ACID 10% (AMINO ACID) [Concomitant]
  32. COMBIFLEX PERI INFU. BAG (MADE BY CHOONG-WAE) (COMBIFLEX PERI INFU. BA [Concomitant]
  33. INSULIN LISPRO (INSULIN LISPRO) [Concomitant]
  34. STREPTASE [Concomitant]
  35. AMOXICILLIN/CLAVULANATE (AMOXICILLIN/CLAVULANATE) [Concomitant]
  36. DOXOFYLLINE (DOXOFYLLINE) [Concomitant]
  37. GLUCOSE/SALINE 5% (GLUCOSE/SALINE 5%) [Concomitant]
  38. LANSOPRAZOLE [Concomitant]
  39. ERYTHROMYCIN [Concomitant]
  40. NPH INSULIN (INSULIN INJECTION, ISOPHANE) [Concomitant]
  41. HUMAN INSULIN (HUMAN INSULIN) [Concomitant]
  42. ACETYLCYSTEINE [Concomitant]
  43. HUMAN NPH INSULIN (HUMAN NPH NSULIN) [Concomitant]
  44. HUMAN REGULAR INSULIN (HUMAN REGULAR INSULIN) [Concomitant]
  45. ACEBROPHYLLINE (ACEBROPHYLLINE) [Concomitant]
  46. NITROGLYCERIN [Concomitant]
  47. BISOPROLOL HEMIFUMARATE (BISOPROLOL HEMIFUMARATE) [Concomitant]
  48. DOMPERIDONE MALEATE (DOMPERIDONE MALEATE) [Concomitant]
  49. CAFSOL (MADE BY CHONG-KUN-DANG) [Concomitant]
  50. INTRALIPID (MADE BY GREENCROSS) [Concomitant]
  51. ALPRAZOLAM [Concomitant]
  52. RANITIDINE [Concomitant]

REACTIONS (7)
  - CELLULITIS [None]
  - DIABETIC GASTROPATHY [None]
  - NAUSEA [None]
  - ORAL INTAKE REDUCED [None]
  - PALLOR [None]
  - TOOTHACHE [None]
  - VOMITING [None]
